FAERS Safety Report 8269852-1 (Version None)
Quarter: 2012Q2

REPORT INFORMATION
  Report Type: 
  Country: None (occurrence: None)
  Receive Date: 20120410
  Receipt Date: 20120330
  Transmission Date: 20120825
  Serious: Yes (Other)
  Sender: FDA-Public Use
  Company Number: CA-JNJFOC-20120400214

PATIENT
  Sex: Female
  Weight: 62 kg

DRUGS (6)
  1. HYDROCORTISONE [Concomitant]
     Indication: PREMEDICATION
     Route: 065
  2. IMURAN [Concomitant]
     Route: 065
  3. REMICADE [Suspect]
     Indication: COLITIS ULCERATIVE
     Route: 042
     Dates: start: 20110101
  4. CIPROFLOXACIN HYDROCHLORIDE [Concomitant]
     Route: 065
  5. FLAGYL [Concomitant]
     Route: 065
  6. TYLENOL (CAPLET) [Concomitant]
     Indication: PREMEDICATION
     Route: 048

REACTIONS (3)
  - HAEMOGLOBIN DECREASED [None]
  - HEART RATE INCREASED [None]
  - DEHYDRATION [None]
